FAERS Safety Report 4285684-3 (Version None)
Quarter: 2004Q1

REPORT INFORMATION
  Report Type: 
  Country: None (occurrence: None)
  Receive Date: 20040203
  Receipt Date: 20040127
  Transmission Date: 20041129
  Serious: Yes (Death, Life-Threatening)
  Sender: FDA-Public Use
  Company Number: 7272

PATIENT
  Age: 63 Year
  Sex: Male

DRUGS (3)
  1. METHOTREXATE [Suspect]
     Dosage: 10 MG WEEKLY
     Dates: start: 19990801, end: 20010801
  2. METHOTREXATE [Suspect]
     Dosage: 10 MG WEEKLY
     Dates: end: 20010901
  3. CELECOXIB [Suspect]
     Indication: RHEUMATOID ARTHRITIS
     Dosage: 200 MG PO
     Route: 048
     Dates: end: 20010901

REACTIONS (2)
  - PNEUMONIA [None]
  - SUDDEN DEATH [None]
